FAERS Safety Report 13711398 (Version 2)
Quarter: 2017Q3

REPORT INFORMATION
  Report Type: Report from Study
  Country: CA (occurrence: CA)
  Receive Date: 20170703
  Receipt Date: 20170802
  Transmission Date: 20171127
  Serious: Yes (Other)
  Sender: FDA-Public Use
  Company Number: CA-BRISTOL-MYERS SQUIBB COMPANY-BMS-2017-050245

PATIENT
  Age: 74 Year
  Sex: Female

DRUGS (1)
  1. ABATACEPT [Suspect]
     Active Substance: ABATACEPT
     Indication: RHEUMATOID ARTHRITIS
     Dosage: 750 MG, Q4WK
     Route: 042
     Dates: start: 20160720

REACTIONS (7)
  - Oedema peripheral [Unknown]
  - Fall [Unknown]
  - Crepitations [Unknown]
  - Loss of consciousness [Unknown]
  - Arthralgia [Unknown]
  - Face oedema [Unknown]
  - Catheter placement [Unknown]

NARRATIVE: CASE EVENT DATE: 20170626
